FAERS Safety Report 20386354 (Version 2)
Quarter: 2023Q1

REPORT INFORMATION
  Report Type: Spontaneous
  Country: US (occurrence: US)
  Receive Date: 20220127
  Receipt Date: 20230125
  Transmission Date: 20230418
  Serious: No
  Sender: FDA-Public Use
  Company Number: US-ALLERGAN-2143669US

PATIENT
  Age: 56 Year
  Sex: Female
  Weight: 81.633 kg

DRUGS (16)
  1. BOTOX [Suspect]
     Active Substance: ONABOTULINUMTOXINA
     Indication: Headache
     Dosage: UNK UNK, SINGLE
     Dates: start: 20211006, end: 20211006
  2. BOTOX [Suspect]
     Active Substance: ONABOTULINUMTOXINA
     Indication: Muscle spasms
     Dosage: UNK UNK, SINGLE
     Dates: start: 20211006, end: 20211006
  3. BOTOX [Suspect]
     Active Substance: ONABOTULINUMTOXINA
     Indication: Dystonia
  4. BOTOX [Suspect]
     Active Substance: ONABOTULINUMTOXINA
     Indication: Spinal osteoarthritis
  5. MOBIC [Concomitant]
     Active Substance: MELOXICAM
     Dosage: UNK
  6. UNSPECIFIED INGREDIENT [Concomitant]
     Active Substance: UNSPECIFIED INGREDIENT
     Indication: Thyroid disorder
     Dosage: UNK
  7. UNSPECIFIED INGREDIENT [Concomitant]
     Active Substance: UNSPECIFIED INGREDIENT
     Indication: Blood cholesterol
     Dosage: UNK
  8. ROBAXIN [Concomitant]
     Active Substance: METHOCARBAMOL
     Indication: Muscle relaxant therapy
     Dosage: UNK
  9. ALEVE [Concomitant]
     Active Substance: NAPROXEN SODIUM
  10. AZITHROMYCIN [Concomitant]
     Active Substance: AZITHROMYCIN
     Dosage: 250 MG
  11. DICLOFENAC [Concomitant]
     Active Substance: DICLOFENAC
  12. METHOCARBAMOL [Concomitant]
     Active Substance: METHOCARBAMOL
  13. MOTRIN [Concomitant]
     Active Substance: IBUPROFEN
  14. PREDNISONE [Concomitant]
     Active Substance: PREDNISONE
  15. TRAMADOL [Concomitant]
     Active Substance: TRAMADOL
  16. TYLENOL [Concomitant]
     Active Substance: ACETAMINOPHEN

REACTIONS (3)
  - Off label use [Unknown]
  - Drug ineffective [Unknown]
  - Drug ineffective for unapproved indication [Unknown]

NARRATIVE: CASE EVENT DATE: 20211006
